FAERS Safety Report 20475233 (Version 1)
Quarter: 2022Q1

REPORT INFORMATION
  Report Type: Spontaneous
  Country: CA (occurrence: CA)
  Receive Date: 20220215
  Receipt Date: 20220215
  Transmission Date: 20220423
  Serious: Yes (Other)
  Sender: FDA-Public Use
  Company Number: CA-HLS-202200269

PATIENT
  Age: 67 Year
  Sex: Male

DRUGS (3)
  1. CLOZAPINE [Suspect]
     Active Substance: CLOZAPINE
     Route: 048
  2. CLOZAPINE [Suspect]
     Active Substance: CLOZAPINE
     Route: 048
  3. MODERNA COVID-19 VACCINE [Suspect]
     Active Substance: ELASOMERAN
     Dosage: VIAL CONTAINS 10 DOSES OF 0.5ML
     Route: 065

REACTIONS (6)
  - Antipsychotic drug level increased [Unknown]
  - Blood creatinine increased [Unknown]
  - Drug interaction [Unknown]
  - Pneumonia [Unknown]
  - Somnolence [Unknown]
  - Therapy change [Unknown]
